FAERS Safety Report 6361831-4 (Version None)
Quarter: 2009Q3

REPORT INFORMATION
  Report Type: 
  Country: None (occurrence: None)
  Receive Date: 20090918
  Receipt Date: 20090908
  Transmission Date: 20100115
  Serious: Yes (Hospitalization)
  Sender: FDA-Public Use
  Company Number: US-WYE-H05929308

PATIENT
  Age: 45 Year
  Sex: Female

DRUGS (8)
  1. EFFEXOR XR [Suspect]
     Indication: DEPRESSION
     Route: 048
     Dates: start: 20080401, end: 20080101
  2. EFFEXOR XR [Suspect]
     Route: 048
     Dates: start: 20080101, end: 20080101
  3. EFFEXOR XR [Suspect]
     Route: 048
     Dates: start: 20080101, end: 20080101
  4. EFFEXOR XR [Suspect]
     Route: 048
     Dates: start: 20080101, end: 20080101
  5. EFFEXOR XR [Suspect]
     Dosage: UNKNOWN
     Route: 048
     Dates: start: 20080101
  6. TRAZODONE [Concomitant]
     Dosage: 50-100 MG
  7. REMERON [Suspect]
     Indication: DEPRESSION
     Route: 048
     Dates: start: 20080401, end: 20080101
  8. REMERON [Suspect]
     Route: 048
     Dates: start: 20080101, end: 20080101

REACTIONS (1)
  - HOSPITALISATION [None]
